FAERS Safety Report 14797745 (Version 1)
Quarter: 2018Q2

REPORT INFORMATION
  Report Type: Spontaneous
  Country: FR (occurrence: FR)
  Receive Date: 20180424
  Receipt Date: 20180424
  Transmission Date: 20180711
  Serious: Yes (Death, Life-Threatening)
  Sender: FDA-Public Use
  Company Number: FR-TEVA-2018-FR-884662

PATIENT
  Age: 50 Year
  Sex: Female
  Weight: 49 kg

DRUGS (8)
  1. MYCAMINE [Concomitant]
     Active Substance: MICAFUNGIN SODIUM
     Route: 042
  2. VANCOMYCINE [Suspect]
     Active Substance: VANCOMYCIN
     Route: 042
  3. SIMULECT [Suspect]
     Active Substance: BASILIXIMAB
     Route: 042
  4. VANCOMYCINE [Suspect]
     Active Substance: VANCOMYCIN
     Route: 042
  5. CELLCEPT [Suspect]
     Active Substance: MYCOPHENOLATE MOFETIL\MYCOPHENOLATE MOFETIL HYDROCHLORIDE
     Route: 042
  6. ACICLOVIR [Suspect]
     Active Substance: ACYCLOVIR
     Route: 042
  7. MEROPENEM ANHYDRE [Suspect]
     Active Substance: MEROPENEM
     Route: 042
  8. AMBISOME [Concomitant]
     Active Substance: AMPHOTERICIN B
     Route: 042

REACTIONS (1)
  - Agranulocytosis [Recovered/Resolved]
